FAERS Safety Report 25345127 (Version 1)
Quarter: 2025Q2

REPORT INFORMATION
  Report Type: Spontaneous
  Country: SE (occurrence: SE)
  Receive Date: 20250522
  Receipt Date: 20250522
  Transmission Date: 20250716
  Serious: Yes (Other)
  Sender: BAUSCH AND LOMB
  Company Number: SE-BAUSCH-BL-2025-006472

PATIENT
  Age: 76 Year
  Sex: Male

DRUGS (1)
  1. ZYCLARA [Suspect]
     Active Substance: IMIQUIMOD
     Indication: Actinic keratosis
     Route: 065
     Dates: start: 20230127

REACTIONS (2)
  - Alopecia areata [Not Recovered/Not Resolved]
  - Alopecia totalis [Not Recovered/Not Resolved]

NARRATIVE: CASE EVENT DATE: 20240711
